FAERS Safety Report 22076161 (Version 1)
Quarter: 2023Q1

REPORT INFORMATION
  Report Type: Spontaneous
  Country: NL (occurrence: NL)
  Receive Date: 20230309
  Receipt Date: 20230309
  Transmission Date: 20230418
  Serious: Yes (Hospitalization)
  Sender: FDA-Public Use
  Company Number: None

PATIENT
  Sex: Male
  Weight: 68 kg

DRUGS (1)
  1. NAPROXEN [Suspect]
     Active Substance: NAPROXEN
     Indication: Pyrexia
     Dosage: 1000 MILLIGRAM DAILY; BRAND NAME NOT SPECIFIED
     Route: 065
     Dates: start: 20230209, end: 20230211

REACTIONS (1)
  - Rash erythematous [Recovering/Resolving]
